FAERS Safety Report 22010133 (Version 1)
Quarter: 2023Q1

REPORT INFORMATION
  Report Type: Spontaneous
  Country: CN (occurrence: CN)
  Receive Date: 20230220
  Receipt Date: 20230220
  Transmission Date: 20230418
  Serious: Yes (Hospitalization, Other)
  Sender: FDA-Public Use
  Company Number: CN-SA-SAC20230215001392

PATIENT
  Age: 91 Year
  Sex: Female

DRUGS (9)
  1. ENOXAPARIN SODIUM [Suspect]
     Active Substance: ENOXAPARIN SODIUM
     Indication: Anticoagulant therapy
     Dosage: 0.4 ML, QD
     Route: 058
     Dates: start: 20230128, end: 20230130
  2. PIPERACILLIN SODIUM\TAZOBACTAM SODIUM [Suspect]
     Active Substance: PIPERACILLIN SODIUM\TAZOBACTAM SODIUM
     Indication: Pneumonitis
     Dosage: 2.25 G, Q8H
     Route: 041
     Dates: start: 20230128, end: 20230202
  3. SODIUM CHLORIDE [Concomitant]
     Active Substance: SODIUM CHLORIDE
     Dosage: 100 ML, Q8H
     Route: 041
     Dates: start: 20230128, end: 20230202
  4. SODIUM CHLORIDE [Concomitant]
     Active Substance: SODIUM CHLORIDE
     Dosage: 100 ML, QD
     Route: 041
     Dates: start: 20230128, end: 20230130
  5. METHYLPREDNISOLONE [Concomitant]
     Active Substance: METHYLPREDNISOLONE
     Indication: Pneumonitis
     Dosage: 40 MG, QD
     Route: 041
     Dates: start: 20230128, end: 20230130
  6. ESOMEPRAZOLE SODIUM [Concomitant]
     Active Substance: ESOMEPRAZOLE SODIUM
     Indication: Haemostasis
     Dosage: 40 MG, BID
     Route: 041
  7. ESOMEPRAZOLE SODIUM [Concomitant]
     Active Substance: ESOMEPRAZOLE SODIUM
     Indication: Gastric disorder
  8. SOMATOSTATIN [Concomitant]
     Active Substance: SOMATOSTATIN
     Indication: Haemostasis
     Dosage: 3 MG, Q12H
  9. SOMATOSTATIN [Concomitant]
     Active Substance: SOMATOSTATIN
     Indication: Gastric disorder

REACTIONS (2)
  - Faeces discoloured [Recovering/Resolving]
  - Upper gastrointestinal haemorrhage [Recovering/Resolving]

NARRATIVE: CASE EVENT DATE: 20230129
